FAERS Safety Report 7430886-8 (Version None)
Quarter: 2011Q2

REPORT INFORMATION
  Report Type: 
  Country: None (occurrence: None)
  Receive Date: 20110421
  Receipt Date: 20110331
  Transmission Date: 20111010
  Serious: No
  Sender: FDA-Public Use
  Company Number: US-B.I. PHARMACEUTICALS,INC./RIDGEFIELD-2011-BP-09760BP

PATIENT
  Sex: Female

DRUGS (5)
  1. PRADAXA [Suspect]
     Indication: CEREBROVASCULAR ACCIDENT PROPHYLAXIS
  2. PRADAXA [Suspect]
     Indication: ATRIAL FIBRILLATION
     Dosage: 300 MG
     Route: 048
     Dates: start: 20110128
  3. METOPROLOL [Concomitant]
     Indication: HYPERTENSION
  4. VITAMIN D [Concomitant]
     Indication: PROPHYLAXIS
  5. SPIRONOLACTONE [Concomitant]
     Indication: OEDEMA
     Dosage: 25 MG
     Dates: start: 20100101

REACTIONS (2)
  - NAUSEA [None]
  - FREQUENT BOWEL MOVEMENTS [None]
